FAERS Safety Report 4522597-3 (Version None)
Quarter: 2004Q4

REPORT INFORMATION
  Report Type: 
  Country: None (occurrence: None)
  Receive Date: 20041207
  Receipt Date: 20041122
  Transmission Date: 20050328
  Serious: Yes (Hospitalization)
  Sender: FDA-Public Use
  Company Number: FR_041105281

PATIENT
  Age: 79 Year
  Sex: Male

DRUGS (2)
  1. PERGOLIDE MESYLATE [Suspect]
     Indication: PARKINSON'S DISEASE
     Dosage: 3 MG DAY
  2. MODOPAR [Concomitant]

REACTIONS (4)
  - ARRHYTHMIA [None]
  - GENERALISED OEDEMA [None]
  - PULMONARY OEDEMA [None]
  - RASH ERYTHEMATOUS [None]
